FAERS Safety Report 22277534 (Version 2)
Quarter: 2023Q2

REPORT INFORMATION
  Report Type: Spontaneous
  Country: BG (occurrence: BG)
  Receive Date: 20230503
  Receipt Date: 20230623
  Transmission Date: 20230721
  Serious: Yes (Hospitalization, Other)
  Sender: FDA-Public Use
  Company Number: BG-BRISTOL-MYERS SQUIBB COMPANY-2023-061839

PATIENT
  Age: 71 Year
  Sex: Male

DRUGS (3)
  1. OPDIVO [Suspect]
     Active Substance: NIVOLUMAB
     Indication: Non-small cell lung cancer
     Route: 042
     Dates: start: 20230203, end: 202303
  2. YERVOY [Suspect]
     Active Substance: IPILIMUMAB
     Indication: Non-small cell lung cancer
     Route: 042
     Dates: start: 20230203, end: 202303
  3. CARBOPLATIN [Concomitant]
     Active Substance: CARBOPLATIN
     Indication: Non-small cell lung cancer
     Dosage: 2 COURSES
     Dates: start: 20230203

REACTIONS (6)
  - Pericardial effusion malignant [Recovering/Resolving]
  - Atrial fibrillation [Recovering/Resolving]
  - Lymph node pain [Recovering/Resolving]
  - Pneumonia bacterial [Recovering/Resolving]
  - Coronary artery stenosis [Unknown]
  - Coronary artery disease [Unknown]
